FAERS Safety Report 11746230 (Version 1)
Quarter: 2015Q4

REPORT INFORMATION
  Report Type: Spontaneous
  Country: US (occurrence: None)
  Receive Date: 20151116
  Receipt Date: 20151116
  Transmission Date: 20160304
  Serious: Yes (Disabling)
  Sender: FDA-Public Use
  Company Number: None

PATIENT
  Age: 60 Year
  Sex: Male
  Weight: 68.95 kg

DRUGS (10)
  1. CLORAZAPAM [Concomitant]
  2. LACTASE [Concomitant]
     Active Substance: LACTASE
  3. LITHIUM CARBONATE. [Concomitant]
     Active Substance: LITHIUM CARBONATE
  4. ALFUZOSIN [Concomitant]
     Active Substance: ALFUZOSIN
  5. SEROQUEL [Concomitant]
     Active Substance: QUETIAPINE FUMARATE
  6. LAMOTRAGENE [Concomitant]
  7. CONCERTA [Concomitant]
     Active Substance: METHYLPHENIDATE HYDROCHLORIDE
  8. LYSINE [Concomitant]
     Active Substance: LYSINE
  9. MYRBETRIQ [Suspect]
     Active Substance: MIRABEGRON
     Indication: POLLAKIURIA
     Route: 048
     Dates: start: 20150218, end: 20150318
  10. FISH OIL [Concomitant]
     Active Substance: FISH OIL

REACTIONS (4)
  - Peyronie^s disease [None]
  - Dupuytren^s contracture [None]
  - Libido decreased [None]
  - Condition aggravated [None]

NARRATIVE: CASE EVENT DATE: 20150325
